FAERS Safety Report 20343747 (Version 2)
Quarter: 2022Q1

REPORT INFORMATION
  Report Type: Spontaneous
  Country: CH (occurrence: CH)
  Receive Date: 20220118
  Receipt Date: 20220120
  Transmission Date: 20220424
  Serious: Yes (Hospitalization, Other)
  Sender: FDA-Public Use
  Company Number: CH-BAYER-2022A003950

PATIENT

DRUGS (1)
  1. EYLEA [Interacting]
     Active Substance: AFLIBERCEPT
     Indication: Retinal vein occlusion
     Dosage: 40 MG/ML, 1 DF, Q1MON (STANDARD MONTHLY INJECTION)
     Route: 031
     Dates: start: 20210706, end: 20210805

REACTIONS (3)
  - Retinal artery occlusion [Not Recovered/Not Resolved]
  - Blindness unilateral [Unknown]
  - Drug interaction [Unknown]

NARRATIVE: CASE EVENT DATE: 20210806
